FAERS Safety Report 6505294-4 (Version None)
Quarter: 2009Q4

REPORT INFORMATION
  Report Type: 
  Country: None (occurrence: None)
  Receive Date: 20091218
  Receipt Date: 20000508
  Transmission Date: 20100525
  Serious: No
  Sender: FDA-Public Use
  Company Number: US-BRISTOL-MYERS SQUIBB COMPANY-10376671

PATIENT
  Age: 38 Year
  Sex: Female

DRUGS (3)
  1. QUESTRAN [Suspect]
  2. NASONEX [Concomitant]
  3. PROGESTERONE [Concomitant]

REACTIONS (1)
  - DRUG EXPOSURE DURING PREGNANCY [None]
